FAERS Safety Report 9553897 (Version 1)
Quarter: 2013Q3

REPORT INFORMATION
  Report Type: Report from Study
  Country: BR (occurrence: BR)
  Receive Date: 20130925
  Receipt Date: 20130925
  Transmission Date: 20140515
  Serious: Yes (Hospitalization, Other)
  Sender: FDA-Public Use
  Company Number: PHHY2008BR11149

PATIENT
  Sex: Female
  Weight: 86 kg

DRUGS (4)
  1. FORASEQ [Suspect]
     Indication: EMPHYSEMA
     Dosage: FORMOTEROL FUMARATE: 12 UG, BUDESONIDE: 400 UG
     Dates: start: 2005, end: 200603
  2. FORASEQ [Suspect]
     Dosage: FORMOTEROL FUMARATE: 12 UG, BUDESONIDE: 400 UG
     Dates: start: 200704
  3. FORASEQ [Suspect]
     Dosage: FORMOTEROL FUMARATE: 12 UG, BUDESONIDE: 200 UG
     Dates: start: 20080612
  4. GALVUS [Suspect]
     Indication: DIABETES MELLITUS
     Dosage: 50 MG
     Route: 048
     Dates: start: 200804

REACTIONS (3)
  - Fatigue [Recovered/Resolved]
  - Dyspnoea [Recovered/Resolved]
  - Diabetes mellitus inadequate control [Unknown]
